FAERS Safety Report 24625875 (Version 3)
Quarter: 2024Q4

REPORT INFORMATION
  Report Type: Spontaneous
  Country: GR (occurrence: GR)
  Receive Date: 20241115
  Receipt Date: 20241225
  Transmission Date: 20250115
  Serious: Yes (Death, Other)
  Sender: BRISTOL-MYERS SQUIBB COMPANY
  Company Number: GR-BRISTOL-MYERS SQUIBB COMPANY-2024-178055

PATIENT
  Age: 80 Year
  Sex: Female

DRUGS (2)
  1. LENALIDOMIDE [Suspect]
     Active Substance: LENALIDOMIDE
     Indication: Diffuse large B-cell lymphoma
     Dosage: UNK
     Dates: start: 202402
  2. TAFASITAMAB [Suspect]
     Active Substance: TAFASITAMAB
     Indication: Diffuse large B-cell lymphoma
     Dosage: DOSE AND FREQUENCY AS PER THE APPROVED SMPC. 4TH LINE TREATMENT, THE DURATION OF THE MINJUVI TREATME
     Route: 042
     Dates: start: 202402

REACTIONS (1)
  - Death [Fatal]
